FAERS Safety Report 9136724 (Version 1)
Quarter: 2013Q1

REPORT INFORMATION
  Report Type: Spontaneous
  Country: US (occurrence: US)
  Receive Date: 20130304
  Receipt Date: 20130304
  Transmission Date: 20140127
  Serious: Yes (Other)
  Sender: FDA-Public Use
  Company Number: US-ABBOTT-12P-163-0931024-00

PATIENT
  Age: 61 None
  Sex: Male
  Weight: 77.18 kg

DRUGS (3)
  1. ANDROGEL [Suspect]
     Indication: HYPOGONADISM
  2. ANDROGEL 1.62% [Suspect]
     Indication: HYPOGONADISM
     Dosage: 3 PUMPS DAILY
     Dates: start: 20110902, end: 201201
  3. TESTOSTERONE [Suspect]
     Indication: HYPOGONADISM
     Route: 050
     Dates: start: 2008

REACTIONS (2)
  - Prostate cancer [Unknown]
  - Fatigue [Unknown]
